FAERS Safety Report 25390181 (Version 1)
Quarter: 2025Q2

REPORT INFORMATION
  Report Type: Spontaneous
  Country: US (occurrence: US)
  Receive Date: 20250603
  Receipt Date: 20250603
  Transmission Date: 20250716
  Serious: No
  Sender: PFIZER
  Company Number: US-PFIZER INC-202500112270

PATIENT
  Sex: Female

DRUGS (1)
  1. ZAVEGEPANT [Suspect]
     Active Substance: ZAVEGEPANT
     Route: 045

REACTIONS (1)
  - Dysgeusia [Recovered/Resolved]
